FAERS Safety Report 17285612 (Version 3)
Quarter: 2020Q1

REPORT INFORMATION
  Report Type: Spontaneous
  Country: US (occurrence: US)
  Receive Date: 20200117
  Receipt Date: 20200226
  Transmission Date: 20200409
  Serious: Yes (Hospitalization)
  Sender: FDA-Public Use
  Company Number: US-B.I. PHARMACEUTICALS,INC./RIDGEFIELD-2020-US-002363

PATIENT
  Age: 93 Year
  Sex: Male

DRUGS (1)
  1. COMBIVENT [Suspect]
     Active Substance: ALBUTEROL SULFATE\IPRATROPIUM BROMIDE
     Indication: CHRONIC OBSTRUCTIVE PULMONARY DISEASE
     Dosage: INHALATION SPRAY; 1 PUFF 4 TIMES DAILY
     Route: 065

REACTIONS (5)
  - Hypoacusis [Not Recovered/Not Resolved]
  - General physical health deterioration [Unknown]
  - Amnesia [Not Recovered/Not Resolved]
  - Hypoacusis [Unknown]
  - Dyspnoea [Not Recovered/Not Resolved]

NARRATIVE: CASE EVENT DATE: 2019
